FAERS Safety Report 24205648 (Version 1)
Quarter: 2024Q3

REPORT INFORMATION
  Report Type: Spontaneous
  Country: US (occurrence: None)
  Receive Date: 20240813
  Receipt Date: 20240813
  Transmission Date: 20241016
  Serious: Yes (Hospitalization)
  Sender: Public
  Company Number: None

PATIENT
  Age: 9 Year
  Sex: Male
  Weight: 36.6 kg

DRUGS (2)
  1. CYCLOPHOSPHAMIDE [Suspect]
     Active Substance: CYCLOPHOSPHAMIDE
     Dates: end: 20240719
  2. TOPOTECAN [Suspect]
     Active Substance: TOPOTECAN HYDROCHLORIDE
     Dates: end: 20240719

REACTIONS (14)
  - Cough [None]
  - Headache [None]
  - Nausea [None]
  - Vomiting [None]
  - Abdominal pain [None]
  - Pyrexia [None]
  - Leukopenia [None]
  - Anaemia [None]
  - Thrombocytopenia [None]
  - Hyponatraemia [None]
  - Flatulence [None]
  - Pneumonia [None]
  - Colitis [None]
  - Pneumonia fungal [None]

NARRATIVE: CASE EVENT DATE: 20240727
